FAERS Safety Report 25602201 (Version 1)
Quarter: 2025Q3

REPORT INFORMATION
  Report Type: Spontaneous
  Country: US (occurrence: US)
  Receive Date: 20250724
  Receipt Date: 20250724
  Transmission Date: 20251020
  Serious: No
  Sender: NOBELPHARMA
  Company Number: US-NPA-2025-AER-01250

PATIENT
  Age: 16 Year
  Sex: Female

DRUGS (1)
  1. HYFTOR [Suspect]
     Active Substance: SIROLIMUS
     Indication: Tuberous sclerosis complex
     Dosage: APPLY 400 MG (1.25 CM) TOPICALLY DAILY
     Route: 061
     Dates: start: 20240911

REACTIONS (2)
  - Foot fracture [Unknown]
  - Off label use [Unknown]

NARRATIVE: CASE EVENT DATE: 20250625
